FAERS Safety Report 10534050 (Version 1)
Quarter: 2014Q4

REPORT INFORMATION
  Report Type: Spontaneous
  Country: ES (occurrence: ES)
  Receive Date: 20141022
  Receipt Date: 20141022
  Transmission Date: 20150529
  Serious: Yes (Hospitalization)
  Sender: FDA-Public Use
  Company Number: ES-GE HEALTHCARE MEDICAL DIAGNOSTICS-VISP-E2B_00000083

PATIENT
  Age: 71 Year
  Sex: Male

DRUGS (5)
  1. VISIPAQUE [Suspect]
     Active Substance: IODIXANOL
     Indication: DIAGNOSTIC PROCEDURE
  2. INYESPRIN, 100 VIALES [Concomitant]
     Indication: ACUTE MYOCARDIAL INFARCTION
     Route: 042
     Dates: start: 20131118, end: 20131118
  3. SODIUM HEPARIN [Concomitant]
     Active Substance: HEPARIN SODIUM
     Indication: COMPUTERISED TOMOGRAM CORONARY ARTERY
     Route: 042
     Dates: start: 20131118, end: 20131118
  4. VISIPAQUE [Suspect]
     Active Substance: IODIXANOL
     Indication: PRODUCT USED FOR UNKNOWN INDICATION
     Route: 042
     Dates: start: 20131118, end: 20131118
  5. CLOPIDOGREL 75 FECHA [Concomitant]
     Route: 048
     Dates: start: 20131118

REACTIONS (2)
  - Renal failure [Recovered/Resolved]
  - Condition aggravated [Recovered/Resolved]

NARRATIVE: CASE EVENT DATE: 20131119
